FAERS Safety Report 7447746-9 (Version None)
Quarter: 2011Q2

REPORT INFORMATION
  Report Type: 
  Country: None (occurrence: None)
  Receive Date: 20110429
  Receipt Date: 20110105
  Transmission Date: 20111010
  Serious: No
  Sender: FDA-Public Use
  Company Number: US-ASTRAZENECA-2010SE40241

PATIENT
  Age: 78 Year
  Sex: Female

DRUGS (3)
  1. ZESTRIL [Suspect]
     Route: 048
  2. NEXIUM [Suspect]
     Route: 048
  3. NEXIUM [Suspect]
     Dosage: 2 CAPSULES A DAY
     Route: 048

REACTIONS (10)
  - HEPATIC FUNCTION ABNORMAL [None]
  - HEPATIC ENZYME INCREASED [None]
  - DYSPEPSIA [None]
  - GASTROOESOPHAGEAL REFLUX DISEASE [None]
  - GASTRIC DISORDER [None]
  - GASTRIC MUCOSAL HYPERTROPHY [None]
  - SCOLIOSIS [None]
  - CATARACT [None]
  - VOMITING [None]
  - DRUG DOSE OMISSION [None]
